FAERS Safety Report 7575988-0 (Version None)
Quarter: 2011Q2

REPORT INFORMATION
  Report Type: 
  Country: None (occurrence: None)
  Receive Date: 20110628
  Receipt Date: 20110105
  Transmission Date: 20111010
  Serious: Yes (Hospitalization, Other)
  Sender: FDA-Public Use
  Company Number: US-BAYER-201026765NA

PATIENT
  Age: 20 Year
  Sex: Female
  Weight: 60.771 kg

DRUGS (4)
  1. CEPHALEXIN [Concomitant]
  2. YAZ [Suspect]
     Indication: PREMENSTRUAL SYNDROME
     Dosage: UNK
     Route: 048
     Dates: start: 20070101, end: 20080101
  3. PRILOSEC [Concomitant]
  4. IMITREX [Concomitant]
     Dosage: UNK
     Dates: start: 20071201, end: 20080301

REACTIONS (3)
  - CHOLELITHIASIS [None]
  - CHOLECYSTITIS CHRONIC [None]
  - GALLBLADDER CHOLESTEROLOSIS [None]
